FAERS Safety Report 5265107-8 (Version None)
Quarter: 2007Q1

REPORT INFORMATION
  Report Type: 
  Country: None (occurrence: None)
  Receive Date: 20070314
  Receipt Date: 20070313
  Transmission Date: 20070707
  Serious: Yes (Other)
  Sender: FDA-Public Use
  Company Number: US-BRISTOL-MYERS SQUIBB COMPANY-13712104

PATIENT
  Sex: Female

DRUGS (3)
  1. ORENCIA [Suspect]
  2. METHOTREXATE [Concomitant]
  3. ENBREL [Concomitant]

REACTIONS (1)
  - PULMONARY TUBERCULOSIS [None]
